FAERS Safety Report 7515816-2 (Version None)
Quarter: 2011Q2

REPORT INFORMATION
  Report Type: 
  Country: None (occurrence: None)
  Receive Date: 20110601
  Receipt Date: 20110527
  Transmission Date: 20111010
  Serious: Yes (Hospitalization)
  Sender: FDA-Public Use
  Company Number: ES-AMGEN-ESPCT2011025063

PATIENT
  Age: 67 Year
  Sex: Male
  Weight: 78 kg

DRUGS (11)
  1. TELMISARTAN [Concomitant]
     Dosage: 12.5 MG, QD
     Route: 048
     Dates: start: 20080101, end: 20110513
  2. FLUTICASONE PROPIONATE [Concomitant]
     Dosage: UNK UNK, BID
     Dates: start: 20080101
  3. OXALIPLATIN [Suspect]
     Indication: COLORECTAL CANCER
     Dosage: 35 MG/M2, Q2WK
     Route: 042
     Dates: start: 20110330
  4. TIOTROPIUM [Concomitant]
     Dosage: UNK UNK, QD
     Dates: start: 20080101
  5. LEUCOVORIN CALCIUM [Suspect]
     Indication: COLORECTAL CANCER
     Dosage: 400 MG/M2, Q2WK
     Route: 042
     Dates: start: 20110330
  6. ESOMEPRAZOLE MAGNESIUM [Concomitant]
     Dosage: 10 MG, QD
     Route: 048
     Dates: start: 20070101, end: 20110513
  7. SALMETEROL [Concomitant]
     Dosage: UNK UNK, BID
     Dates: start: 20080101
  8. LORAZEPAM [Concomitant]
     Dosage: 1 MG, QD
     Route: 048
     Dates: start: 20100101
  9. PANITUMUMAB [Suspect]
     Indication: COLORECTAL CANCER
     Dosage: 6 MG/KG, Q2WK
     Route: 042
     Dates: start: 20100330
  10. FLUOROURACIL [Suspect]
     Indication: COLORECTAL CANCER
     Dosage: UNK UNK, Q2WK
     Route: 042
     Dates: start: 20110330
  11. HYDROCHLOROTHIAZIDE [Concomitant]
     Dosage: 40 MG, QD
     Route: 048
     Dates: start: 20080101, end: 20110513

REACTIONS (1)
  - INTESTINAL OBSTRUCTION [None]
